FAERS Safety Report 6527865-1 (Version None)
Quarter: 2010Q1

REPORT INFORMATION
  Report Type: 
  Country: None (occurrence: None)
  Receive Date: 20100106
  Receipt Date: 20091230
  Transmission Date: 20100710
  Serious: Yes (Hospitalization)
  Sender: FDA-Public Use
  Company Number: GB-TEVA-219468ISR

PATIENT
  Sex: Female

DRUGS (6)
  1. AMITRIPTYLINE [Suspect]
     Route: 064
  2. FLUOXETINE [Suspect]
     Route: 064
  3. GABAPENTIN [Suspect]
     Route: 064
  4. MORPHINE [Suspect]
     Route: 064
  5. TRAMADOL [Suspect]
     Route: 064
  6. TRIFLUOPERAZINE [Suspect]
     Route: 064

REACTIONS (3)
  - APNOEA [None]
  - DRUG EXPOSURE DURING PREGNANCY [None]
  - DRUG WITHDRAWAL SYNDROME [None]
